FAERS Safety Report 4377690-5 (Version None)
Quarter: 2004Q2

REPORT INFORMATION
  Report Type: 
  Country: None (occurrence: None)
  Receive Date: 20040602
  Receipt Date: 20031001
  Transmission Date: 20050107
  Serious: No
  Sender: FDA-Public Use
  Company Number: NSADSS2003016044

PATIENT
  Age: 53 Year
  Sex: Female
  Weight: 87.9978 kg

DRUGS (10)
  1. PROPULSID [Suspect]
     Indication: IMPAIRED GASTRIC EMPTYING
     Dosage: SEE IMAGE
     Route: 048
     Dates: start: 19980819
  2. PROPULSID [Suspect]
     Indication: IMPAIRED GASTRIC EMPTYING
     Dosage: SEE IMAGE
     Route: 048
     Dates: start: 19990412
  3. DAPSONE [Concomitant]
  4. BETAMETHASONE [Concomitant]
  5. BACTROBAN (MUPIROCIN) [Concomitant]
  6. PREMARIN [Concomitant]
  7. PEPCID [Concomitant]
  8. TRENTAL [Concomitant]
  9. RESTAN (ALL OTHER THERAPEUTIC PRODUCTS) [Concomitant]
  10. INSULIN [Concomitant]

REACTIONS (2)
  - COMPLETED SUICIDE [None]
  - MEDICATION ERROR [None]
